FAERS Safety Report 15262948 (Version 1)
Quarter: 2018Q3

REPORT INFORMATION
  Report Type: Spontaneous
  Country: FI (occurrence: FI)
  Receive Date: 20180810
  Receipt Date: 20180810
  Transmission Date: 20181010
  Serious: Yes (Life-Threatening)
  Sender: FDA-Public Use
  Company Number: FI-009507513-1808FIN002634

PATIENT
  Age: 58 Year
  Sex: Female

DRUGS (10)
  1. KLOTRIPTYL MITE [Concomitant]
     Dosage: 2,DF,DAILY
     Route: 048
  2. RISPERIDONE. [Concomitant]
     Active Substance: RISPERIDONE
     Dosage: 2,MG,DAILY
     Route: 048
  3. CYMBALTA [Concomitant]
     Active Substance: DULOXETINE HYDROCHLORIDE
     Dosage: 120,MG,DAILY
     Route: 048
  4. NALTREXONE HYDROCHLORIDE. [Concomitant]
     Active Substance: NALTREXONE HYDROCHLORIDE
     Dosage: 50,MG,DAILY
     Route: 048
  5. JARDIANCE [Concomitant]
     Active Substance: EMPAGLIFLOZIN
     Indication: TYPE 2 DIABETES MELLITUS
     Dosage: 10,MG,DAILY
     Route: 048
     Dates: start: 20170223, end: 20180611
  6. AKINETON [Concomitant]
     Active Substance: BIPERIDEN HYDROCHLORIDE
     Dosage: 4,MG,DAILY
     Route: 048
  7. JANUMET [Suspect]
     Active Substance: METFORMIN HYDROCHLORIDE\SITAGLIPTIN PHOSPHATE
     Indication: TYPE 2 DIABETES MELLITUS
     Dosage: 2,DF,DAILY
     Route: 048
     Dates: start: 20160509, end: 20180611
  8. RISOLID [Concomitant]
     Active Substance: CHLORDIAZEPOXIDE
     Route: 048
  9. LOSATRIX [Concomitant]
     Active Substance: LOSARTAN POTASSIUM
     Dosage: 1,DF,DAILY
     Route: 048
  10. TEMESTA [Concomitant]
     Route: 048

REACTIONS (7)
  - Compartment syndrome [Not Recovered/Not Resolved]
  - Septic shock [Not Recovered/Not Resolved]
  - Intestinal ischaemia [Not Recovered/Not Resolved]
  - Lactic acidosis [Not Recovered/Not Resolved]
  - Multiple organ dysfunction syndrome [Not Recovered/Not Resolved]
  - Rhabdomyolysis [Not Recovered/Not Resolved]
  - Gastrointestinal necrosis [Not Recovered/Not Resolved]

NARRATIVE: CASE EVENT DATE: 20180612
